FAERS Safety Report 7057979-1 (Version None)
Quarter: 2010Q4

REPORT INFORMATION
  Report Type: 
  Country: None (occurrence: None)
  Receive Date: 20101021
  Receipt Date: 20101021
  Transmission Date: 20110411
  Serious: Yes (Hospitalization, Other)
  Sender: FDA-Public Use
  Company Number: None

PATIENT
  Age: 31 Year
  Sex: Female
  Weight: 104.3273 kg

DRUGS (1)
  1. TRAMADOL HCL [Suspect]
     Indication: HEADACHE
     Dosage: UNKNOWN PRN PO
     Route: 048
     Dates: start: 20100829, end: 20100829

REACTIONS (5)
  - ANGIOEDEMA [None]
  - DRUG HYPERSENSITIVITY [None]
  - NAUSEA [None]
  - NO REACTION ON PREVIOUS EXPOSURE TO DRUG [None]
  - VOMITING [None]
